FAERS Safety Report 6818984-0 (Version None)
Quarter: 2010Q3

REPORT INFORMATION
  Report Type: 
  Country: None (occurrence: None)
  Receive Date: 20100707
  Receipt Date: 20100622
  Transmission Date: 20110219
  Serious: Yes (Other)
  Sender: FDA-Public Use
  Company Number: IT-CELGENEUS-083-50794-10062177

PATIENT

DRUGS (1)
  1. VIDAZA [Suspect]
     Route: 065
     Dates: start: 20091101, end: 20100201

REACTIONS (1)
  - EMBOLISM ARTERIAL [None]
